FAERS Safety Report 12556269 (Version 1)
Quarter: 2016Q3

REPORT INFORMATION
  Report Type: Spontaneous
  Country: US (occurrence: None)
  Receive Date: 20160713
  Receipt Date: 20160713
  Transmission Date: 20161109
  Serious: Yes (Life-Threatening)
  Sender: FDA-Public Use
  Company Number: None

PATIENT
  Age: 64 Year
  Sex: Male

DRUGS (14)
  1. METOPROLOL. [Concomitant]
     Active Substance: METOPROLOL
  2. MULTIVITAMIN [Concomitant]
     Active Substance: VITAMINS
  3. ENSTILAR [Concomitant]
     Active Substance: BETAMETHASONE DIPROPIONATE\CALCIPOTRIENE HYDRATE
  4. TRAVATAN [Concomitant]
     Active Substance: TRAVOPROST
  5. SIMVASTATIN. [Concomitant]
     Active Substance: SIMVASTATIN
  6. KETOROLAC [Concomitant]
     Active Substance: KETOROLAC\KETOROLAC TROMETHAMINE
  7. METFORMIN HCL [Concomitant]
     Active Substance: METFORMIN HYDROCHLORIDE
  8. SHAMPOO [Concomitant]
  9. AMLODIPINE-BENAZ [Concomitant]
  10. XARELTO [Concomitant]
     Active Substance: RIVAROXABAN
  11. VITAMIN D2 [Concomitant]
     Active Substance: ERGOCALCIFEROL
  12. HUMIRA [Suspect]
     Active Substance: ADALIMUMAB
  13. KIRKLAND VIT C [Concomitant]
  14. RETAINE [Concomitant]

REACTIONS (5)
  - Swelling face [None]
  - Dyspnoea [None]
  - Swollen tongue [None]
  - Pruritus [None]
  - Eye swelling [None]

NARRATIVE: CASE EVENT DATE: 20160525
